FAERS Safety Report 8164034-6 (Version None)
Quarter: 2012Q1

REPORT INFORMATION
  Report Type: 
  Country: None (occurrence: None)
  Receive Date: 20120224
  Receipt Date: 20120214
  Transmission Date: 20120608
  Serious: Yes (Other)
  Sender: FDA-Public Use
  Company Number: PHHY2012AU013589

PATIENT
  Sex: Male

DRUGS (2)
  1. CLOZARIL [Suspect]
     Dosage: 300 MG
  2. CLOZARIL [Suspect]
     Dosage: 200 MG, PER DAY
     Dates: start: 20120101

REACTIONS (5)
  - C-REACTIVE PROTEIN INCREASED [None]
  - STRESS [None]
  - ANXIETY [None]
  - HEART RATE INCREASED [None]
  - TROPONIN T INCREASED [None]
